FAERS Safety Report 7231091 (Version 2)
Quarter: 2020Q3

REPORT INFORMATION
  Report Type: Report from Study
  Country: US (occurrence: US)
  Receive Date: 20091228
  Receipt Date: 20100330
  Transmission Date: 20201104
  Serious: Yes (Other)
  Sender: FDA-Public Use
  Company Number: US-ROCHE-675250

PATIENT
  Sex: Female
  Weight: 68.2 kg

DRUGS (13)
  1. PREMARIN [Concomitant]
     Active Substance: ESTROGENS, CONJUGATED
  2. AMITRIPTYLINE [Concomitant]
     Active Substance: AMITRIPTYLINE
  3. PREDNISONE. [Concomitant]
     Active Substance: PREDNISONE
  4. IBANDRONIC ACID. [Suspect]
     Active Substance: IBANDRONIC ACID
     Indication: OSTEOPOROSIS
     Dosage: THERAPY: 1 OR 2 YEARS.
     Route: 048
     Dates: start: 2008
  5. CARDIZEM [Concomitant]
     Active Substance: DILTIAZEM HYDROCHLORIDE
  6. FOSAMAX [Suspect]
     Active Substance: ALENDRONATE SODIUM
     Indication: OSTEOPOROSIS
     Route: 065
  7. LASIX [Concomitant]
     Active Substance: FUROSEMIDE
  8. THEOPHYLLINE [Concomitant]
     Active Substance: THEOPHYLLINE ANHYDROUS
  9. XANAX [Concomitant]
     Active Substance: ALPRAZOLAM
  10. TRICOR [Concomitant]
     Active Substance: FENOFIBRATE
  11. PRANDIN [Concomitant]
     Active Substance: REPAGLINIDE
  12. TRILIPIX [Concomitant]
     Active Substance: FENOFIBRIC ACID
  13. K?DUR [Concomitant]
     Active Substance: POTASSIUM CHLORIDE

REACTIONS (5)
  - Impaired healing [Not Recovered/Not Resolved]
  - Bone density decreased [Unknown]
  - Gingival pain [Not Recovered/Not Resolved]
  - Dental caries [Unknown]
  - Chest pain [Unknown]
